FAERS Safety Report 24261964 (Version 1)
Quarter: 2024Q3

REPORT INFORMATION
  Report Type: Spontaneous
  Country: JP (occurrence: JP)
  Receive Date: 20240829
  Receipt Date: 20240829
  Transmission Date: 20241017
  Serious: Yes (Other)
  Sender: BRISTOL MYERS SQUIBB
  Company Number: JP-ONO-2024JP017218

PATIENT
  Age: 78 Year
  Sex: Female

DRUGS (1)
  1. OPDIVO [Suspect]
     Active Substance: NIVOLUMAB
     Indication: Gastric cancer
     Dosage: UNK
     Route: 041
     Dates: start: 20230920

REACTIONS (2)
  - Cellulitis [Recovering/Resolving]
  - Thrombosis [Unknown]

NARRATIVE: CASE EVENT DATE: 20240814
